FAERS Safety Report 25625955 (Version 1)
Quarter: 2025Q3

REPORT INFORMATION
  Report Type: Report from Study
  Country: US (occurrence: US)
  Receive Date: 20250731
  Receipt Date: 20250731
  Transmission Date: 20251020
  Serious: Yes (Other)
  Sender: MERCK SHARP & DOHME LLC
  Company Number: US-009507513-2244847

PATIENT
  Sex: Female
  Weight: 57.7 kg

DRUGS (13)
  1. WINREVAIR [Suspect]
     Active Substance: SOTATERCEPT-CSRK
     Indication: Pulmonary arterial hypertension
     Dosage: DOSE DESCRIPTION : 0.3 MILLILITER, Q3W?DAILY DOSE : 0.014 MILLILITER?CONCENTRATION: 45 MILLIGRAM?...
     Route: 058
     Dates: start: 202411, end: 2024
  2. WINREVAIR [Suspect]
     Active Substance: SOTATERCEPT-CSRK
     Dosage: DOSE DESCRIPTION : 0.8 MILLILITER, Q3W?DAILY DOSE : 0.038 MILLILITER?REGIMEN DOSE : 0.8  MILLILITER
     Route: 058
     Dates: start: 20250102
  3. WINREVAIR [Suspect]
     Active Substance: SOTATERCEPT-CSRK
  4. WINREVAIR [Suspect]
     Active Substance: SOTATERCEPT-CSRK
     Indication: Pulmonary arterial hypertension
     Dosage: DOSE DESCRIPTION : STRENGTH: 45 MG; 0.3 ML UNDER THE SKIN FOR 1 DOSE, THEN INCREASE TO 0.8 ML FOR...
     Route: 058
     Dates: start: 202411
  5. WINREVAIR [Suspect]
     Active Substance: SOTATERCEPT-CSRK
  6. WINREVAIR [Suspect]
     Active Substance: SOTATERCEPT-CSRK
  7. WINREVAIR [Suspect]
     Active Substance: SOTATERCEPT-CSRK
  8. WINREVAIR [Suspect]
     Active Substance: SOTATERCEPT-CSRK
  9. OPSUMIT [Concomitant]
     Active Substance: MACITENTAN
  10. UPTRAVI [Concomitant]
     Active Substance: SELEXIPAG
     Dosage: DOSE DESCRIPTION : 1000MCG IN THE MORNING AND 800MCG IN THE EVENING
  11. UPTRAVI [Concomitant]
     Active Substance: SELEXIPAG
  12. UPTRAVI [Concomitant]
     Active Substance: SELEXIPAG
     Dosage: DOSE DESCRIPTION : 1000 MCG IN AM AND 800 MCG IN PM
  13. TADALAFIL [Concomitant]
     Active Substance: TADALAFIL

REACTIONS (12)
  - Epistaxis [Recovered/Resolved]
  - Nausea [Unknown]
  - Dyspnoea exertional [Unknown]
  - Vomiting [Unknown]
  - Depressed mood [Unknown]
  - Pain in jaw [Unknown]
  - Neck mass [Not Recovered/Not Resolved]
  - Neck pain [Not Recovered/Not Resolved]
  - Headache [Unknown]
  - Diarrhoea [Unknown]
  - Product administered to patient of inappropriate age [Unknown]
  - Product prescribing issue [Unknown]

NARRATIVE: CASE EVENT DATE: 20240101
